FAERS Safety Report 21856809 (Version 1)
Quarter: 2023Q1

REPORT INFORMATION
  Report Type: Spontaneous
  Country: DE (occurrence: DE)
  Receive Date: 20230113
  Receipt Date: 20230113
  Transmission Date: 20230417
  Serious: Yes (Other)
  Sender: FDA-Public Use
  Company Number: DE-ROCHE-3246348

PATIENT

DRUGS (8)
  1. ATORVASTATIN [Suspect]
     Active Substance: ATORVASTATIN
     Indication: Hypercholesterolaemia
     Dosage: ON AN UNKNOWN DATE, STARTED TO RECEIVE ATORVASTATIN 10 MG
     Route: 048
  2. ATORVASTATIN [Suspect]
     Active Substance: ATORVASTATIN
     Dosage: PRIOR TO SAE ONSET , THE LAST DOSE WAS GIVEN ON 06-DEC-2022
     Route: 048
     Dates: start: 20221206, end: 20221206
  3. MIDAZOLAM [Suspect]
     Active Substance: MIDAZOLAM
     Indication: Type 2 diabetes mellitus
     Dosage: BLINDED MIDAZOLAM HYDROCHLORIDE
     Route: 065
     Dates: start: 20221109
  4. MIDAZOLAM [Suspect]
     Active Substance: MIDAZOLAM
     Dosage: PRIOR TO SAE ONSET , THE LAST DOSE WAS GIVEN ON 06-DEC-2022
     Route: 065
     Dates: start: 20221206, end: 20221206
  5. MIDAZOLAM [Suspect]
     Active Substance: MIDAZOLAM
     Dosage: ON AN UNKNOWN DATE, STARTED TO RECEIVE MIDAZOLAM 0.2 MG
     Route: 048
  6. RAMIPRIL [Concomitant]
     Active Substance: RAMIPRIL
     Indication: Hypertension
     Route: 065
     Dates: start: 2021
  7. AMLODIPINE [Concomitant]
     Active Substance: AMLODIPINE BESYLATE
     Indication: Hypertension
     Route: 065
     Dates: start: 2021
  8. METFORMIN [Concomitant]
     Active Substance: METFORMIN HYDROCHLORIDE
     Indication: Type 2 diabetes mellitus
     Route: 065
     Dates: start: 2017

REACTIONS (2)
  - Syncope [Recovered/Resolved]
  - Product use in unapproved indication [Unknown]

NARRATIVE: CASE EVENT DATE: 20221109
